FAERS Safety Report 8482027 (Version 6)
Quarter: 2014Q3

REPORT INFORMATION
  Report Type: Spontaneous
  Country: US (occurrence: US)
  Receive Date: 20120322
  Receipt Date: 20140731
  Transmission Date: 20150326
  Serious: Yes (Hospitalization, Other)
  Sender: FDA-Public Use
  Company Number: US-009507513-2011SP056194

PATIENT
  Sex: Female
  Weight: 81.65 kg

DRUGS (4)
  1. HORMONAL CONTRACEPTIVES (UNSPECIFIED) [Suspect]
     Active Substance: UNSPECIFIED INGREDIENT
     Indication: PRODUCT USED FOR UNKNOWN INDICATION
  2. COUMADIN [Suspect]
     Active Substance: WARFARIN SODIUM
     Indication: ANTICOAGULANT THERAPY
     Dates: start: 200912
  3. NUVARING [Suspect]
     Active Substance: ETHINYL ESTRADIOL\ETONOGESTREL
     Indication: MENSTRUAL CYCLE MANAGEMENT
     Dates: start: 2007, end: 20091231
  4. NUVARING [Suspect]
     Active Substance: ETHINYL ESTRADIOL\ETONOGESTREL
     Dates: start: 200906

REACTIONS (12)
  - Hypercoagulation [Unknown]
  - Haemorrhagic disorder [Unknown]
  - Deep vein thrombosis [Unknown]
  - Off label use [Unknown]
  - Pulmonary mass [Unknown]
  - Streptococcal infection [Unknown]
  - Atypical pneumonia [Unknown]
  - Lung disorder [Unknown]
  - Pulmonary embolism [Unknown]
  - Menorrhagia [Unknown]
  - Muscle spasms [Unknown]
  - Migraine [Unknown]

NARRATIVE: CASE EVENT DATE: 20091229
